FAERS Safety Report 8956651 (Version 3)
Quarter: 2013Q2

REPORT INFORMATION
  Report Type: Report from Study
  Country: FR (occurrence: FR)
  Receive Date: 20121210
  Receipt Date: 20130618
  Transmission Date: 20140414
  Serious: Yes (Hospitalization)
  Sender: FDA-Public Use
  Company Number: FR-UCBSA-072573

PATIENT
  Sex: Female
  Weight: 48 kg

DRUGS (7)
  1. CIMZIA [Suspect]
     Indication: RHEUMATOID ARTHRITIS
     Dosage: THEN 200 MG EVERY TWO WEEKS
     Route: 058
     Dates: start: 20120913, end: 20121108
  2. CIMZIA [Suspect]
     Indication: RHEUMATOID ARTHRITIS
     Dosage: UNKNOWN DOSE
     Dates: start: 2012, end: 20130402
  3. KARDEGIC [Concomitant]
     Indication: CARDIAC DISORDER
     Dosage: DAILY DOSE: 75 MG
     Route: 048
  4. BISOPROLOL [Concomitant]
     Indication: CARDIAC DISORDER
     Dosage: DAILY DOSE: 5 MG
     Route: 048
  5. ADANCOR [Concomitant]
     Indication: CARDIAC DISORDER
     Dosage: DAILY DOSE: 1 UNIT
     Route: 048
  6. FRACTAL [Concomitant]
     Indication: CARDIAC DISORDER
     Dosage: DAILY DOSE: 40 MG
     Route: 048
  7. RISEDRONATE [Concomitant]
     Indication: OSTEOPOROSIS
     Dosage: 35 MG WEEKLY
     Route: 048

REACTIONS (3)
  - Neck pain [Recovered/Resolved]
  - Erysipelas [Recovered/Resolved]
  - Adverse event [Unknown]
